FAERS Safety Report 16848350 (Version 1)
Quarter: 2019Q3

REPORT INFORMATION
  Report Type: Spontaneous
  Country: JP (occurrence: JP)
  Receive Date: 20190925
  Receipt Date: 20190925
  Transmission Date: 20191005
  Serious: Yes (Other)
  Sender: FDA-Public Use
  Company Number: JP-AMGEN-JPNSP2019082588

PATIENT
  Age: 82 Year
  Sex: Female

DRUGS (9)
  1. GLAKAY [Concomitant]
     Active Substance: MENATETRENONE
     Dosage: 15 MILLIGRAM, TID
     Route: 065
  2. ASPARA [Concomitant]
     Active Substance: CALCIUM ASPARTATE
     Dosage: 200 MILLIGRAM, TID
  3. LOXONIN [Concomitant]
     Active Substance: LOXOPROFEN SODIUM
     Dosage: 60 MILLIGRAM, TID
     Route: 048
  4. CYMBALTA [Concomitant]
     Active Substance: DULOXETINE HYDROCHLORIDE
     Dosage: UNK
     Route: 065
  5. MUCOSTA [Concomitant]
     Active Substance: REBAMIPIDE
     Dosage: UNK
     Route: 065
  6. MUCOSTA [Concomitant]
     Active Substance: REBAMIPIDE
     Dosage: UNK
     Route: 065
  7. GLAKAY [Concomitant]
     Active Substance: MENATETRENONE
     Dosage: 15 MG, TID
     Route: 065
  8. PRALIA [Suspect]
     Active Substance: DENOSUMAB
     Indication: OSTEOPOROSIS
     Dosage: 60 MILLIGRAM, Q6MO
     Route: 023
     Dates: start: 201508, end: 201608
  9. PRALIA [Suspect]
     Active Substance: DENOSUMAB
     Dosage: 60 MILLIGRAM, Q6MO
     Route: 023
     Dates: start: 20170207

REACTIONS (1)
  - Spinal compression fracture [Unknown]

NARRATIVE: CASE EVENT DATE: 20161118
